FAERS Safety Report 25364536 (Version 2)
Quarter: 2025Q2

REPORT INFORMATION
  Report Type: Spontaneous
  Country: US (occurrence: US)
  Receive Date: 20250527
  Receipt Date: 20250625
  Transmission Date: 20250717
  Serious: Yes (Hospitalization, Other)
  Sender: GILEAD
  Company Number: US-GILEAD-2025-0714761

PATIENT
  Age: 57 Year
  Sex: Female
  Weight: 81.7 kg

DRUGS (1)
  1. TECARTUS [Suspect]
     Active Substance: BREXUCABTAGENE AUTOLEUCEL
     Indication: Mantle cell lymphoma
     Route: 065
     Dates: start: 20250428

REACTIONS (1)
  - Mantle cell lymphoma [Unknown]

NARRATIVE: CASE EVENT DATE: 20250514
